FAERS Safety Report 16974832 (Version 1)
Quarter: 2019Q4

REPORT INFORMATION
  Report Type: Other
  Country: ES (occurrence: ES)
  Receive Date: 20191030
  Receipt Date: 20191030
  Transmission Date: 20200122
  Serious: Yes (Hospitalization, Other)
  Sender: FDA-Public Use
  Company Number: ES-ATLAS PHARMACEUTICALS, LLC-2076191

PATIENT
  Age: 15 Year
  Sex: Female

DRUGS (1)
  1. METFORMIN [Suspect]
     Active Substance: METFORMIN HYDROCHLORIDE
     Indication: PRODUCT USED FOR UNKNOWN INDICATION
     Route: 065

REACTIONS (6)
  - Poisoning deliberate [Unknown]
  - Toxicity to various agents [Recovering/Resolving]
  - Lactic acidosis [Unknown]
  - Renal failure [Recovering/Resolving]
  - Hypoglycaemia [Unknown]
  - Suicide attempt [Unknown]
